FAERS Safety Report 11692745 (Version 1)
Quarter: 2015Q4

REPORT INFORMATION
  Report Type: Other
  Country: GB (occurrence: GB)
  Receive Date: 20151103
  Receipt Date: 20151103
  Transmission Date: 20160304
  Serious: Yes (Other)
  Sender: FDA-Public Use
  Company Number: GB-SHIRE-GB201513505

PATIENT
  Age: 12 Year
  Sex: Male

DRUGS (1)
  1. ELAPRASE [Suspect]
     Active Substance: IDURSULFASE
     Indication: MUCOPOLYSACCHARIDOSIS II
     Dosage: 24 MG, UNKNOWN
     Route: 041

REACTIONS (6)
  - Head injury [Unknown]
  - Eye injury [Unknown]
  - Epilepsy [Unknown]
  - Contusion [Unknown]
  - Back injury [Unknown]
  - Limb injury [Unknown]

NARRATIVE: CASE EVENT DATE: 20151021
